FAERS Safety Report 4505555-4 (Version None)
Quarter: 2004Q4

REPORT INFORMATION
  Report Type: 
  Country: None (occurrence: None)
  Receive Date: 20041119
  Receipt Date: 20040927
  Transmission Date: 20050328
  Serious: No
  Sender: FDA-Public Use
  Company Number: US-GLAXOSMITHKLINE-A0527416A

PATIENT
  Age: 73 Year
  Sex: Male

DRUGS (3)
  1. AVODART [Suspect]
     Indication: BENIGN PROSTATIC HYPERPLASIA
     Dosage: 1MG PER DAY
     Route: 048
     Dates: start: 20040815
  2. FLOMAX [Concomitant]
  3. FLONASE [Concomitant]

REACTIONS (1)
  - DYSURIA [None]
